FAERS Safety Report 7512034-9 (Version None)
Quarter: 2011Q2

REPORT INFORMATION
  Report Type: 
  Country: None (occurrence: None)
  Receive Date: 20110531
  Receipt Date: 20110525
  Transmission Date: 20111010
  Serious: Yes (Hospitalization, Other)
  Sender: FDA-Public Use
  Company Number: JP-BRACCO-004357

PATIENT
  Age: 66 Year
  Sex: Male

DRUGS (10)
  1. ALDACTONE [Concomitant]
  2. URSO 250 [Concomitant]
  3. LOPERAMIDE HCL [Concomitant]
  4. IOPAMIDOL [Suspect]
     Indication: COMPUTERISED TOMOGRAM
     Route: 042
     Dates: start: 20080619, end: 20080619
  5. LASIX [Concomitant]
  6. AMOBAN [Concomitant]
  7. IOPAMIDOL [Suspect]
     Indication: PANCREATIC CARCINOMA
     Route: 042
     Dates: start: 20080619, end: 20080619
  8. LANSOPRAZOLE [Concomitant]
  9. CODEINE SULFATE [Concomitant]
  10. POLITOSE [Concomitant]

REACTIONS (7)
  - BLOOD BLISTER [None]
  - PAIN IN EXTREMITY [None]
  - INJECTION SITE EXTRAVASATION [None]
  - LIVEDO RETICULARIS [None]
  - INJECTION SITE SWELLING [None]
  - SKIN ULCER [None]
  - PURPURA [None]
